FAERS Safety Report 16140480 (Version 1)
Quarter: 2019Q2

REPORT INFORMATION
  Report Type: Spontaneous
  Country: US (occurrence: US)
  Receive Date: 20190401
  Receipt Date: 20190401
  Transmission Date: 20190711
  Serious: No
  Sender: FDA-Public Use
  Company Number: US-SEPTODONT-201804799

PATIENT

DRUGS (2)
  1. LIGNOSPAN 1:100,000 [Concomitant]
     Indication: DENTAL LOCAL ANAESTHESIA
     Dates: start: 201807, end: 201807
  2. ZORCAINE [Suspect]
     Active Substance: ARTICAINE HYDROCHLORIDE\EPINEPHRINE BITARTRATE
     Indication: DENTAL LOCAL ANAESTHESIA
     Dates: start: 201807, end: 201807

REACTIONS (2)
  - Product administration interrupted [Recovered/Resolved]
  - Product leakage [Recovered/Resolved]

NARRATIVE: CASE EVENT DATE: 201807
